FAERS Safety Report 11535261 (Version 2)
Quarter: 2015Q3

REPORT INFORMATION
  Report Type: Spontaneous
  Country: JP (occurrence: JP)
  Receive Date: 20150922
  Receipt Date: 20150922
  Transmission Date: 20151125
  Serious: Yes (Other)
  Sender: FDA-Public Use
  Company Number: JP-SA-2014SA160701

PATIENT
  Age: 76 Year
  Sex: Male

DRUGS (1)
  1. BCG FOR IMMUNOTHERAPY [Suspect]
     Active Substance: BACILLUS CALMETTE-GUERIN ANTIGEN, UNSPECIFIED SUBSTRAIN
     Indication: BLADDER CANCER
     Dosage: 80 MG/TIME, TOTAL 8 TIMES
     Route: 043

REACTIONS (4)
  - Tuberculosis [Recovered/Resolved]
  - Pyuria [Recovered/Resolved]
  - Cystoscopy abnormal [Recovered/Resolved]
  - Cystitis [Recovered/Resolved]
